FAERS Safety Report 7442457-8 (Version None)
Quarter: 2011Q2

REPORT INFORMATION
  Report Type: 
  Country: None (occurrence: None)
  Receive Date: 20110428
  Receipt Date: 20110425
  Transmission Date: 20111010
  Serious: Yes (Hospitalization)
  Sender: FDA-Public Use
  Company Number: US-SANOFI-AVENTIS-2011SA025834

PATIENT
  Age: 91 Year
  Sex: Female

DRUGS (8)
  1. LASIX [Suspect]
     Route: 065
  2. FOSAMAX [Concomitant]
  3. DOXAZOSIN [Concomitant]
  4. METOLAZONE [Suspect]
  5. BLINDED THERAPY [Suspect]
     Indication: THROMBOSIS PROPHYLAXIS
     Route: 048
     Dates: start: 20100118
  6. LEVOXYL [Concomitant]
  7. AMIODARONE [Concomitant]
  8. WARFARIN SODIUM [Suspect]
     Indication: THROMBOSIS PROPHYLAXIS
     Route: 048
     Dates: start: 20100118

REACTIONS (3)
  - SYNCOPE [None]
  - RENAL FAILURE ACUTE [None]
  - ANAEMIA [None]
